FAERS Safety Report 4334825-8 (Version None)
Quarter: 2004Q2

REPORT INFORMATION
  Report Type: 
  Country: None (occurrence: None)
  Receive Date: 20040407
  Receipt Date: 20040407
  Transmission Date: 20050107
  Serious: Yes (Other)
  Sender: FDA-Public Use
  Company Number: None

PATIENT
  Age: 77 Year
  Sex: Male
  Weight: 76.2043 kg

DRUGS (1)
  1. MEMANTINE HCL [Suspect]
     Indication: MEMORY IMPAIRMENT
     Dosage: 10 MG PO BID
     Route: 048
     Dates: start: 20040211, end: 20040330

REACTIONS (2)
  - BALANCE DISORDER [None]
  - DIZZINESS [None]
